FAERS Safety Report 15500704 (Version 4)
Quarter: 2019Q1

REPORT INFORMATION
  Report Type: Spontaneous
  Country: US (occurrence: US)
  Receive Date: 20181015
  Receipt Date: 20190103
  Transmission Date: 20190417
  Serious: Yes (Hospitalization)
  Sender: FDA-Public Use
  Company Number: US-PFIZER INC-2018413780

PATIENT
  Age: 37 Year
  Sex: Female

DRUGS (2)
  1. IBRANCE [Suspect]
     Active Substance: PALBOCICLIB
     Indication: BREAST CANCER
     Dosage: 125 MG, CYCLIC (DAYS 1-21, OFF 7 DAYS)(DAILY 21 DAYS ON 7 DAYS OFF)
     Route: 048
     Dates: start: 20171101
  2. IBRANCE [Suspect]
     Active Substance: PALBOCICLIB
     Dosage: 100 MG, DAILY
     Route: 048
     Dates: start: 20180928

REACTIONS (6)
  - White blood cell count decreased [Not Recovered/Not Resolved]
  - Stomatitis [Unknown]
  - Fatigue [Unknown]
  - Nausea [Recovered/Resolved]
  - Platelet count decreased [Not Recovered/Not Resolved]
  - Cancer pain [Recovered/Resolved]

NARRATIVE: CASE EVENT DATE: 2017
